FAERS Safety Report 21241669 (Version 1)
Quarter: 2022Q3

REPORT INFORMATION
  Report Type: Spontaneous
  Country: JP (occurrence: JP)
  Receive Date: 20220823
  Receipt Date: 20220823
  Transmission Date: 20221026
  Serious: Yes (Other)
  Sender: FDA-Public Use
  Company Number: JP-ABBVIE-22K-087-4512447-00

PATIENT
  Age: 60 Year
  Sex: Male

DRUGS (4)
  1. RINVOQ [Suspect]
     Active Substance: UPADACITINIB
     Indication: Ankylosing spondylitis
     Route: 048
     Dates: start: 20220804, end: 20220812
  2. MELOXICAM [Concomitant]
     Active Substance: MELOXICAM
     Indication: Analgesic therapy
     Route: 048
  3. PREDNISOLONE [Concomitant]
     Active Substance: PREDNISOLONE
     Indication: Inflammation
     Route: 048
  4. METHOTREXATE [Concomitant]
     Active Substance: METHOTREXATE
     Indication: Arthralgia
     Dosage: 8MG
     Route: 048

REACTIONS (2)
  - Anaphylactoid reaction [Recovered/Resolved]
  - Palpitations [Recovered/Resolved]

NARRATIVE: CASE EVENT DATE: 20220815
